FAERS Safety Report 18924136 (Version 7)
Quarter: 2022Q2

REPORT INFORMATION
  Report Type: Report from Study
  Country: CO (occurrence: CO)
  Receive Date: 20210222
  Receipt Date: 20220512
  Transmission Date: 20220720
  Serious: Yes (Other)
  Sender: FDA-Public Use
  Company Number: NVSC2021CO039095

PATIENT
  Sex: Female
  Weight: 67 kg

DRUGS (10)
  1. KISQALI [Suspect]
     Active Substance: RIBOCICLIB
     Indication: Breast cancer metastatic
     Dosage: 600 MG, QD
     Route: 048
     Dates: start: 202010, end: 20210201
  2. KISQALI [Suspect]
     Active Substance: RIBOCICLIB
     Dosage: 400 MG, QD (2 OF 200 MG)
     Route: 048
     Dates: start: 20210201, end: 20210208
  3. KISQALI [Suspect]
     Active Substance: RIBOCICLIB
     Dosage: 400 MG, QD (2 TABLET OF 200 MG)
     Route: 048
     Dates: start: 202103
  4. KISQALI [Suspect]
     Active Substance: RIBOCICLIB
     Dosage: 400 MG, Q24H
     Route: 065
     Dates: start: 20210420
  5. KISQALI [Suspect]
     Active Substance: RIBOCICLIB
     Dosage: 400 MG, QD (200 MG TABLET)
     Route: 048
  6. FEMARA [Suspect]
     Active Substance: LETROZOLE
     Indication: Breast cancer
     Dosage: 2.5 MG, QD
     Route: 048
     Dates: start: 202010
  7. LEVOTHYROXINE [Concomitant]
     Active Substance: LEVOTHYROXINE
     Indication: Hypothyroidism
     Dosage: 50 MG, QD
     Route: 048
     Dates: start: 202007
  8. CALCIUM [Concomitant]
     Active Substance: CALCIUM
     Indication: Bone disorder
     Dosage: QD (2 MONTHS AGO)
     Route: 048
     Dates: start: 202101
  9. VITAMIN D [Concomitant]
     Active Substance: VITAMIN D NOS
     Indication: Bone disorder
     Dosage: QD (2 MONTHS AGO)
     Route: 048
     Dates: start: 202101
  10. CALCIUM\VITAMIN D [Concomitant]
     Active Substance: CALCIUM\VITAMIN D
     Indication: Supplementation therapy
     Dosage: 600 MG, QD
     Route: 048
     Dates: start: 202101

REACTIONS (5)
  - Hepatitis [Recovered/Resolved]
  - Blood alkaline phosphatase increased [Unknown]
  - Colitis [Unknown]
  - Synovial cyst [Unknown]
  - Constipation [Recovering/Resolving]
